FAERS Safety Report 6369100-3 (Version None)
Quarter: 2009Q3

REPORT INFORMATION
  Report Type: 
  Country: None (occurrence: None)
  Receive Date: 20090922
  Receipt Date: 20090916
  Transmission Date: 20100115
  Serious: Yes (Hospitalization)
  Sender: FDA-Public Use
  Company Number: PHHO2009DE06506

PATIENT
  Sex: Male
  Weight: 77 kg

DRUGS (8)
  1. TASIGNA [Suspect]
     Indication: CHRONIC MYELOID LEUKAEMIA
     Dosage: 800MG DAILY
     Route: 048
     Dates: start: 20071214, end: 20081114
  2. TASIGNA [Suspect]
     Dosage: NO TREATMENT
     Dates: start: 20081115, end: 20081124
  3. TASIGNA [Suspect]
     Dosage: 800 MG, QD
     Route: 048
     Dates: start: 20081125
  4. ASPIRIN [Concomitant]
  5. METODURA [Concomitant]
  6. ALLOPURINOL [Concomitant]
  7. REDUCTO [Concomitant]
  8. CALCIUM BROMIDE [Concomitant]

REACTIONS (7)
  - ALANINE AMINOTRANSFERASE INCREASED [None]
  - ANGINA PECTORIS [None]
  - CORONARY ARTERY DISEASE [None]
  - CORONARY ARTERY OCCLUSION [None]
  - CORONARY ARTERY STENOSIS [None]
  - LEFT VENTRICULAR HYPERTROPHY [None]
  - STENT PLACEMENT [None]
